FAERS Safety Report 6680991-9 (Version None)
Quarter: 2010Q2

REPORT INFORMATION
  Report Type: 
  Country: None (occurrence: None)
  Receive Date: 20100414
  Receipt Date: 20100407
  Transmission Date: 20101027
  Serious: Yes (Other)
  Sender: FDA-Public Use
  Company Number: US-SANOFI-AVENTIS-2010SA020992

PATIENT
  Age: 72 Year
  Sex: Female

DRUGS (11)
  1. MULTAQ [Suspect]
     Indication: ATRIAL FIBRILLATION
     Route: 048
     Dates: start: 20100216, end: 20100325
  2. LOTREL [Concomitant]
  3. DIGOXIN [Concomitant]
  4. GARLIC [Concomitant]
  5. COREG [Concomitant]
  6. SIMVASTATIN [Concomitant]
  7. GLIMEPIRIDE [Concomitant]
  8. FUROSEMIDE [Concomitant]
  9. CALCIUM [Concomitant]
  10. TRAMADOL HCL [Concomitant]
  11. ASPIRIN [Concomitant]

REACTIONS (2)
  - BRADYCARDIA [None]
  - SINUS ARREST [None]
